FAERS Safety Report 13134537 (Version 7)
Quarter: 2018Q3

REPORT INFORMATION
  Report Type: Spontaneous
  Country: FR (occurrence: FR)
  Receive Date: 20170120
  Receipt Date: 20180712
  Transmission Date: 20181010
  Serious: Yes (Congenital Anomaly, Other)
  Sender: FDA-Public Use
  Company Number: FR-009507513-1701FRA005494

PATIENT
  Sex: Male
  Weight: 2.38 kg

DRUGS (3)
  1. ISENTRESS [Suspect]
     Active Substance: RALTEGRAVIR POTASSIUM
     Indication: HIV INFECTION
     Dosage: UNK
     Route: 064
     Dates: start: 20150717, end: 20160417
  2. TRUVADA [Suspect]
     Active Substance: EMTRICITABINE\TENOFOVIR DISOPROXIL FUMARATE
     Indication: HIV INFECTION
     Dosage: UNK
     Route: 064
     Dates: start: 20150717, end: 20160417
  3. AMLOR [Concomitant]
     Active Substance: AMLODIPINE BESYLATE
     Indication: HYPERTENSION
     Dosage: UNK
     Route: 064
     Dates: start: 20150717, end: 20160417

REACTIONS (8)
  - Thymus hypoplasia [Unknown]
  - Congenital choroid plexus cyst [Unknown]
  - Foetal exposure during pregnancy [Recovered/Resolved]
  - Trisomy 18 [Not Recovered/Not Resolved]
  - Cleft lip [Not Recovered/Not Resolved]
  - Nasal disorder [Unknown]
  - Multiple congenital abnormalities [Not Recovered/Not Resolved]
  - Ventricular septal defect [Not Recovered/Not Resolved]

NARRATIVE: CASE EVENT DATE: 2015
